FAERS Safety Report 6499804-3 (Version None)
Quarter: 2009Q4

REPORT INFORMATION
  Report Type: 
  Country: None (occurrence: None)
  Receive Date: 20091215
  Receipt Date: 20091211
  Transmission Date: 20100525
  Serious: Yes (Death)
  Sender: FDA-Public Use
  Company Number: US-GILEAD-2009-0025720

PATIENT
  Sex: Female
  Weight: 71.732 kg

DRUGS (8)
  1. LETAIRIS [Suspect]
     Indication: PULMONARY ARTERIAL HYPERTENSION
     Route: 048
     Dates: start: 20081117
  2. COUMADIN [Concomitant]
  3. DIGOXIN [Concomitant]
  4. LASIX [Concomitant]
  5. PREDNISONE [Concomitant]
  6. POTASSIUM CHLORIDE [Concomitant]
  7. VIAGRA [Concomitant]
  8. NEXIUM [Concomitant]

REACTIONS (4)
  - CARDIAC FAILURE CONGESTIVE [None]
  - FLUID RETENTION [None]
  - RESPIRATORY FAILURE [None]
  - RIGHT VENTRICULAR FAILURE [None]
